FAERS Safety Report 7528844-8 (Version None)
Quarter: 2011Q2

REPORT INFORMATION
  Report Type: 
  Country: None (occurrence: None)
  Receive Date: 20110607
  Receipt Date: 20110210
  Transmission Date: 20111010
  Serious: No
  Sender: FDA-Public Use
  Company Number: US-ASTRAZENECA-2011SE10807

PATIENT
  Age: 68 Year
  Sex: Female

DRUGS (6)
  1. PRILOSEC OTC [Suspect]
     Indication: COUGH
     Route: 048
     Dates: start: 20110208
  2. PRILOSEC OTC [Suspect]
     Indication: GASTROOESOPHAGEAL REFLUX DISEASE
     Route: 048
     Dates: start: 20110208
  3. CULTURELLE [Concomitant]
     Dosage: UNKNOWN
  4. PRILOSEC OTC [Suspect]
     Route: 048
  5. PRILOSEC OTC [Suspect]
     Route: 048
  6. EVISTA [Concomitant]
     Dosage: UNKNOWN

REACTIONS (2)
  - TINNITUS [None]
  - INAPPROPRIATE SCHEDULE OF DRUG ADMINISTRATION [None]
